FAERS Safety Report 4320968-1 (Version None)
Quarter: 2004Q1

REPORT INFORMATION
  Report Type: 
  Country: None (occurrence: None)
  Receive Date: 20040318
  Receipt Date: 20040304
  Transmission Date: 20041129
  Serious: Yes (Life-Threatening, Hospitalization, Other)
  Sender: FDA-Public Use
  Company Number: US067899

PATIENT
  Age: 63 Year
  Sex: Female
  Weight: 57.7 kg

DRUGS (14)
  1. NEULASTA [Suspect]
     Indication: CHEMOTHERAPY
     Dosage: 6 MG, 1 IN 2 WEEKS, SC
     Route: 058
     Dates: start: 20040113, end: 20040224
  2. DOLASETRON MESYLATE [Concomitant]
  3. DEXAMETHASONE [Concomitant]
  4. DOXORUBICIN HYDROCHLORIDE [Concomitant]
  5. CYCLOPHOSPHAMIDE [Concomitant]
  6. ARANESP [Concomitant]
  7. TRIAMTERENE AND HYDROCHLOROTHIAZIDE [Concomitant]
  8. ATORVASTATIN CALCIUM [Concomitant]
  9. ALENDRONATE SODIUM [Concomitant]
  10. ASPIRIN [Concomitant]
  11. MULTIVIT [Concomitant]
  12. CALCIUM CARBONATE [Concomitant]
  13. DOCETAXEL [Concomitant]
  14. ZOLPIDEM TARTRATE [Concomitant]

REACTIONS (15)
  - ABASIA [None]
  - ANAEMIA [None]
  - ANXIETY [None]
  - ASTHENIA [None]
  - DIZZINESS [None]
  - DYSPNOEA [None]
  - ERYTHEMA [None]
  - FEELING ABNORMAL [None]
  - HEADACHE [None]
  - LEUKOCYTOSIS [None]
  - NAUSEA [None]
  - ORTHOSTATIC HYPOTENSION [None]
  - REFUSAL OF TREATMENT BY PATIENT [None]
  - VISION BLURRED [None]
  - WEIGHT DECREASED [None]
